FAERS Safety Report 14637878 (Version 1)
Quarter: 2018Q1

REPORT INFORMATION
  Report Type: Spontaneous
  Country: SE (occurrence: SE)
  Receive Date: 20180314
  Receipt Date: 20180314
  Transmission Date: 20180509
  Serious: Yes (Other)
  Sender: FDA-Public Use
  Company Number: SE-BAYER-2018-043206

PATIENT
  Sex: Female

DRUGS (2)
  1. MIRENA [Suspect]
     Active Substance: LEVONORGESTREL
     Dosage: 20 MCG/24HR, CONT
     Route: 015
  2. MIRENA [Suspect]
     Active Substance: LEVONORGESTREL

REACTIONS (9)
  - Uterine pain [Unknown]
  - Abdominal pain lower [Unknown]
  - Breast pain [Unknown]
  - Weight fluctuation [Unknown]
  - Dizziness [Unknown]
  - Nausea [Unknown]
  - Amenorrhoea [Unknown]
  - Breast swelling [Unknown]
  - Aggression [Unknown]

NARRATIVE: CASE EVENT DATE: 201710
